FAERS Safety Report 5416474-3 (Version None)
Quarter: 2007Q3

REPORT INFORMATION
  Report Type: 
  Country: None (occurrence: None)
  Receive Date: 20070814
  Receipt Date: 20070803
  Transmission Date: 20080115
  Serious: Yes (Life-Threatening, Hospitalization, Other)
  Sender: FDA-Public Use
  Company Number: 07082203

PATIENT
  Age: 16 Year
  Sex: Female

DRUGS (3)
  1. WARFARIN SODIUM [Suspect]
     Dosage: ORAL
     Route: 048
  2. DIGOXIN [Suspect]
     Dosage: ORAL
     Route: 048
  3. PROPAFENONE HCL [Suspect]

REACTIONS (6)
  - CARDIOACTIVE DRUG LEVEL INCREASED [None]
  - HYPOTENSION [None]
  - INCORRECT DOSE ADMINISTERED [None]
  - INTERNATIONAL NORMALISED RATIO INCREASED [None]
  - SINUS BRADYCARDIA [None]
  - SUICIDE ATTEMPT [None]
